FAERS Safety Report 18962814 (Version 2)
Quarter: 2021Q1

REPORT INFORMATION
  Report Type: Spontaneous
  Country: CL (occurrence: CL)
  Receive Date: 20210303
  Receipt Date: 20210329
  Transmission Date: 20210420
  Serious: Yes (Hospitalization, Other)
  Sender: FDA-Public Use
  Company Number: CL-GLAXOSMITHKLINE-CL2021054475

PATIENT
  Sex: Male

DRUGS (3)
  1. RELVAR ELLIPTA [Suspect]
     Active Substance: FLUTICASONE FUROATE\VILANTEROL TRIFENATATE
     Indication: ASTHMA
     Dosage: 1 PUFF(S), QD 184/22 MCG
     Route: 055
     Dates: start: 202101
  2. SALBUTAMOL [Suspect]
     Active Substance: ALBUTEROL
     Indication: PRODUCT USED FOR UNKNOWN INDICATION
     Dosage: UNK
  3. XARELTO [Suspect]
     Active Substance: RIVAROXABAN
     Indication: THROMBOSIS
     Dosage: UNK
     Dates: start: 2014

REACTIONS (6)
  - Coronavirus infection [Recovering/Resolving]
  - Drug ineffective [Unknown]
  - Circumstance or information capable of leading to medication error [Not Recovered/Not Resolved]
  - Chest discomfort [Unknown]
  - Loss of consciousness [Unknown]
  - Insomnia [Unknown]
